FAERS Safety Report 9908807 (Version 2)
Quarter: 2014Q1

REPORT INFORMATION
  Report Type: Spontaneous
  Country: US (occurrence: US)
  Receive Date: 20140219
  Receipt Date: 20140219
  Transmission Date: 20141002
  Serious: No
  Sender: FDA-Public Use
  Company Number: US-PFIZER INC-2013191879

PATIENT
  Age: 53 Year
  Sex: Female
  Weight: 79.37 kg

DRUGS (2)
  1. LYRICA [Suspect]
     Dosage: UNKNOWN DOSE TWO TIMES A DAY (TOTAL 300MG IN A DAY)
     Route: 048
  2. ALEVE [Concomitant]
     Dosage: UNK

REACTIONS (2)
  - Eye swelling [Unknown]
  - Lip swelling [Unknown]
